FAERS Safety Report 9013879 (Version 2)
Quarter: 2013Q1

REPORT INFORMATION
  Report Type: Spontaneous
  Country: BR (occurrence: BR)
  Receive Date: 20130115
  Receipt Date: 20130208
  Transmission Date: 20140127
  Serious: Yes (Life-Threatening, Hospitalization, Other)
  Sender: FDA-Public Use
  Company Number: PHHY2013BR002850

PATIENT
  Sex: Female

DRUGS (8)
  1. DIOVAN [Suspect]
     Indication: HYPERTENSION
     Dosage: 2 DF, QD (2 TABLETS (80MG) DAILY)
     Route: 048
  2. RASILEZ [Suspect]
     Indication: HYPERTENSION
     Dosage: UNK UKN, UNK
     Route: 048
  3. LOSARTAN POTASSIUM [Concomitant]
     Indication: HYPERTENSION
     Dosage: 2 DF, QD
     Route: 048
  4. CODEIN [Concomitant]
     Indication: BACK PAIN
     Dosage: 2 DF, QD
     Route: 048
  5. ATENOLOL [Concomitant]
     Indication: HYPERTENSION
     Dosage: 1 DF, QD
     Route: 048
  6. RIVOTRIL [Concomitant]
     Indication: SLEEP DISORDER
     Dosage: 1 DF, QD
     Route: 048
  7. CENEVIT [Concomitant]
     Dosage: UNK
     Route: 048
  8. LASIX [Concomitant]
     Dosage: 2 DF, QD
     Route: 048

REACTIONS (11)
  - Coma [Recovered/Resolved]
  - Abdominal pain upper [Recovered/Resolved]
  - Pulmonary oedema [Recovered/Resolved]
  - Cardiac arrest [Recovered/Resolved]
  - Myocardial infarction [Recovered/Resolved]
  - Cerebrovascular accident [Recovering/Resolving]
  - Venous occlusion [Recovered/Resolved]
  - Renal impairment [Recovering/Resolving]
  - Wound [Recovered/Resolved]
  - Local swelling [Not Recovered/Not Resolved]
  - Cough [Recovered/Resolved]
